FAERS Safety Report 26138058 (Version 1)
Quarter: 2025Q4

REPORT INFORMATION
  Report Type: Spontaneous
  Country: US (occurrence: US)
  Receive Date: 20251210
  Receipt Date: 20251210
  Transmission Date: 20260118
  Serious: No
  Sender: CELLTRION
  Company Number: US-CELLTRION INC.-2025US031663

PATIENT

DRUGS (4)
  1. ZYMFENTRA [Suspect]
     Active Substance: INFLIXIMAB-DYYB
     Indication: Crohn^s disease
     Dosage: 120 MG/ML PEN KIT - INJECT THE CONTENTS OF ONE  DEVICE UNDER THE SKIN EVERY TWO WEEKS
     Route: 058
     Dates: start: 202412
  2. ZYMFENTRA [Suspect]
     Active Substance: INFLIXIMAB-DYYB
     Dosage: 120 MG/ML PEN KIT - INJECT THE CONTENTS OF ONE  DEVICE UNDER THE SKIN EVERY TWO WEEKS
     Route: 058
     Dates: start: 20250721
  3. ZYMFENTRA [Suspect]
     Active Substance: INFLIXIMAB-DYYB
     Dosage: 120 MG/ML PEN KIT - INJECT THE CONTENTS OF ONE  DEVICE UNDER THE SKIN EVERY TWO WEEKS
     Route: 058
     Dates: start: 20250804
  4. ZYMFENTRA [Suspect]
     Active Substance: INFLIXIMAB-DYYB
     Dosage: 120 MG/ML PEN KIT - INJECT THE CONTENTS OF ONE  DEVICE UNDER THE SKIN EVERY TWO WEEKS
     Route: 058
     Dates: start: 20251027

REACTIONS (2)
  - Swelling [Recovered/Resolved]
  - Pruritus [Recovered/Resolved]
